FAERS Safety Report 8983280 (Version 2)
Quarter: 2014Q1

REPORT INFORMATION
  Report Type: Report from Study
  Country: NL (occurrence: NL)
  Receive Date: 20121224
  Receipt Date: 20140314
  Transmission Date: 20141002
  Serious: Yes (Death)
  Sender: FDA-Public Use
  Company Number: PHHY2012NL118394

PATIENT
  Sex: Male

DRUGS (3)
  1. ZOMETA [Suspect]
     Indication: PROSTATE CANCER METASTATIC
     Dosage: 4 MG PER 100ML ONCE PER 42 DAYS
     Route: 042
     Dates: start: 20120920
  2. ZOMETA [Suspect]
     Dosage: 4 MG PER 100ML ONCE PER 42 DAYS
     Route: 042
     Dates: start: 20121101
  3. ZOMETA [Suspect]
     Dosage: 4 MG PER 100ML ONCE PER 42 DAYS
     Route: 042
     Dates: start: 20121213

REACTIONS (2)
  - Prostate cancer metastatic [Fatal]
  - Terminal state [Fatal]
